FAERS Safety Report 8589719-9 (Version None)
Quarter: 2012Q3

REPORT INFORMATION
  Report Type: 
  Country: None (occurrence: None)
  Receive Date: 20120813
  Receipt Date: 20120807
  Transmission Date: 20120928
  Serious: No
  Sender: FDA-Public Use
  Company Number: US-PFIZER INC-2012192793

PATIENT
  Age: 80 Year
  Sex: Female

DRUGS (1)
  1. LYRICA [Suspect]
     Dosage: UNK
     Route: 048
     Dates: start: 20111001, end: 20120101

REACTIONS (9)
  - MUSCLE SPASMS [None]
  - GAIT DISTURBANCE [None]
  - DIARRHOEA [None]
  - DISORIENTATION [None]
  - HYPERHIDROSIS [None]
  - PAIN [None]
  - MUSCULAR WEAKNESS [None]
  - DIZZINESS [None]
  - WITHDRAWAL SYNDROME [None]
